FAERS Safety Report 7642185-X (Version None)
Quarter: 2011Q3

REPORT INFORMATION
  Report Type: 
  Country: None (occurrence: None)
  Receive Date: 20110728
  Receipt Date: 20110725
  Transmission Date: 20111222
  Serious: Yes (Other)
  Sender: FDA-Public Use
  Company Number: US-AMGEN-USASP2011037794

PATIENT
  Sex: Male
  Weight: 100.68 kg

DRUGS (1)
  1. NPLATE [Suspect]
     Indication: IDIOPATHIC THROMBOCYTOPENIC PURPURA
     Dosage: 180 A?G, UNK
     Dates: start: 20091107, end: 20110328

REACTIONS (1)
  - PLATELET COUNT DECREASED [None]
